FAERS Safety Report 14005006 (Version 6)
Quarter: 2017Q4

REPORT INFORMATION
  Report Type: Report from Study
  Country: DE (occurrence: DE)
  Receive Date: 20170922
  Receipt Date: 20171105
  Transmission Date: 20180321
  Serious: Yes (Hospitalization, Other)
  Sender: FDA-Public Use
  Company Number: DE-BRISTOL-MYERS SQUIBB COMPANY-BMS-2017-082286

PATIENT
  Age: 61 Year
  Sex: Male

DRUGS (2)
  1. NIVOLUMAB [Suspect]
     Active Substance: NIVOLUMAB
     Indication: MALIGNANT MELANOMA
     Dosage: 98 MG, Q3WK
     Route: 042
     Dates: start: 20170728, end: 20170818
  2. IPILIMUMAB [Suspect]
     Active Substance: IPILIMUMAB
     Indication: MALIGNANT MELANOMA
     Dosage: 294 MG, Q3WK
     Route: 065
     Dates: start: 20170728, end: 20170818

REACTIONS (12)
  - C-reactive protein increased [Unknown]
  - Pyrexia [Unknown]
  - Arthritis [Recovered/Resolved]
  - Intertrigo [Not Recovered/Not Resolved]
  - Hyponatraemia [Unknown]
  - Infection [Recovered/Resolved]
  - Tachypnoea [Unknown]
  - Skin disorder [Unknown]
  - Leukocytosis [Not Recovered/Not Resolved]
  - Sinus tachycardia [Recovered/Resolved]
  - General physical health deterioration [Unknown]
  - Oedema peripheral [Recovered/Resolved]

NARRATIVE: CASE EVENT DATE: 20170901
